FAERS Safety Report 24852197 (Version 1)
Quarter: 2025Q1

REPORT INFORMATION
  Report Type: Spontaneous
  Country: US (occurrence: US)
  Receive Date: 20250116
  Receipt Date: 20250116
  Transmission Date: 20250409
  Serious: No
  Sender: SANOFI AVENTIS
  Company Number: US-SA-2025SA013347

PATIENT
  Sex: Female

DRUGS (3)
  1. DUPIXENT [Suspect]
     Active Substance: DUPILUMAB
     Indication: Dermatitis atopic
     Dosage: 300 MG, QOW
     Route: 058
     Dates: start: 20240127
  2. FLUCONAZOLE [Concomitant]
     Active Substance: FLUCONAZOLE
  3. TOPIRAMATE [Concomitant]
     Active Substance: TOPIRAMATE

REACTIONS (1)
  - Product dose omission in error [Unknown]
